FAERS Safety Report 7205080-6 (Version None)
Quarter: 2010Q4

REPORT INFORMATION
  Report Type: 
  Country: None (occurrence: None)
  Receive Date: 20101230
  Receipt Date: 20101217
  Transmission Date: 20110411
  Serious: Yes (Hospitalization, Other)
  Sender: FDA-Public Use
  Company Number: US-CELGENEUS-163-21880-10052492

PATIENT
  Sex: Female
  Weight: 69.553 kg

DRUGS (25)
  1. REVLIMID [Suspect]
     Indication: AMYLOIDOSIS
     Route: 048
     Dates: start: 20090701
  2. REVLIMID [Suspect]
     Route: 048
     Dates: end: 20100301
  3. ACETAMINOPHEN [Concomitant]
     Route: 065
  4. TYLENOL PM [Concomitant]
     Route: 065
  5. DULCOLAX [Concomitant]
     Route: 065
  6. CALCITRIOL [Concomitant]
     Route: 065
  7. CALCIUM CARBONATE [Concomitant]
     Route: 048
  8. CARVEDILOL [Concomitant]
     Route: 048
  9. VITAMIN B-12 [Concomitant]
     Route: 030
  10. DEXAMETHASONE [Concomitant]
     Route: 065
  11. COLACE [Concomitant]
     Route: 065
  12. SENOKOT [Concomitant]
     Route: 048
  13. EPOGEN [Concomitant]
     Dosage: 13,200 UNITS
     Route: 065
  14. VENOFER [Concomitant]
     Route: 051
  15. LEVOTHYROXINE [Concomitant]
     Route: 065
  16. MULTI-VITAMINS [Concomitant]
     Route: 065
  17. PHENERGAN [Concomitant]
     Route: 065
  18. SEVELAMER [Concomitant]
     Route: 065
  19. ALDACTONE [Concomitant]
     Route: 065
  20. DIURETICS [Concomitant]
     Route: 065
     Dates: start: 20090801
  21. IMMUNE GLOBULIN INTRAVENOUS (HUMAN) [Concomitant]
     Route: 051
  22. CORTICOSTEROIDS [Concomitant]
     Route: 065
     Dates: start: 20090801
  23. MELPHALAN [Concomitant]
     Route: 065
  24. ANCEF [Concomitant]
     Route: 065
     Dates: start: 20091223
  25. ANCEF [Concomitant]
     Indication: CHILLS

REACTIONS (4)
  - ARTERIOVENOUS FISTULA THROMBOSIS [None]
  - DYSPNOEA [None]
  - FLUID OVERLOAD [None]
  - PNEUMONIA [None]
